FAERS Safety Report 7530347-1 (Version None)
Quarter: 2011Q2

REPORT INFORMATION
  Report Type: 
  Country: None (occurrence: None)
  Receive Date: 20110607
  Receipt Date: 20110525
  Transmission Date: 20111010
  Serious: Yes (Hospitalization, Disabling)
  Sender: FDA-Public Use
  Company Number: FR-UCBSA-028868

PATIENT
  Sex: Female

DRUGS (9)
  1. KEPPRA [Suspect]
     Indication: EPILEPSY
     Route: 048
     Dates: start: 20110106, end: 20110307
  2. COUMADIN [Concomitant]
     Route: 048
  3. DEPAKENE [Concomitant]
     Indication: EPILEPSY
     Route: 048
  4. CORDARONE [Concomitant]
     Indication: ARRHYTHMIA
     Route: 048
  5. PERINDOPRIL ERBUMINE [Concomitant]
     Route: 048
  6. ASPIRIN [Concomitant]
     Route: 048
  7. NOROXIN [Concomitant]
     Route: 048
  8. KEPPRA [Suspect]
     Dosage: DOSE DECREASE
     Route: 048
  9. TEGRETOL [Concomitant]
     Indication: EPILEPSY
     Dates: end: 20110107

REACTIONS (4)
  - DYSPHAGIA [None]
  - COUGH [None]
  - ODYNOPHAGIA [None]
  - PNEUMONIA ASPIRATION [None]
